FAERS Safety Report 14417373 (Version 1)
Quarter: 2018Q1

REPORT INFORMATION
  Report Type: Spontaneous
  Country: US (occurrence: US)
  Receive Date: 20180122
  Receipt Date: 20180122
  Transmission Date: 20180509
  Serious: No
  Sender: FDA-Public Use
  Company Number: US-ALLERGAN-1724151US

PATIENT
  Age: 72 Year
  Sex: Female
  Weight: 77.98 kg

DRUGS (4)
  1. TIMOLOL. [Concomitant]
     Active Substance: TIMOLOL
     Indication: INTRAOCULAR PRESSURE TEST ABNORMAL
     Route: 047
  2. DORZOLAMIDE [Concomitant]
     Active Substance: DORZOLAMIDE
     Indication: INTRAOCULAR PRESSURE TEST ABNORMAL
     Dosage: UNK UNK, TID
     Route: 047
  3. PREDNISOLONE UNK [Suspect]
     Active Substance: PREDNISOLONE
     Indication: CYCLITIS
     Dosage: 1 GTT, BID
     Route: 047
     Dates: start: 20170509
  4. PREDNISOLONE UNK [Suspect]
     Active Substance: PREDNISOLONE
     Dosage: 1 GTT, BID
     Route: 047
     Dates: start: 201311

REACTIONS (5)
  - Accidental exposure to product [Unknown]
  - Off label use [Unknown]
  - Drug dose omission [Unknown]
  - Visual impairment [Unknown]
  - Product dropper issue [Unknown]

NARRATIVE: CASE EVENT DATE: 20170510
